FAERS Safety Report 10158442 (Version 2)
Quarter: 2014Q2

REPORT INFORMATION
  Report Type: Report from Study
  Country: US (occurrence: US)
  Receive Date: 20140507
  Receipt Date: 20140619
  Transmission Date: 20141212
  Serious: Yes (Other)
  Sender: FDA-Public Use
  Company Number: PHEH2014US009137

PATIENT
  Age: 71 Year
  Sex: Male
  Weight: 87.54 kg

DRUGS (7)
  1. ZOMETA [Suspect]
     Indication: PLASMA CELL MYELOMA
     Dosage: 4 MG / 5ML
     Route: 042
     Dates: start: 20140114, end: 20140408
  2. ZOMETA [Suspect]
     Dosage: 4 MG, UNK
     Route: 042
  3. VELCADE [Suspect]
     Indication: PLASMA CELL MYELOMA
     Dosage: 1.6 MG/M2, WEEKLY
     Route: 042
     Dates: start: 20131231, end: 20140311
  4. DEXAMETHASON [Concomitant]
     Dosage: 1 MG, UNK
  5. ZOFRAN [Concomitant]
     Dosage: 8 MG, UNK
  6. ARICEPT [Concomitant]
     Dosage: 5 MG, UNK
  7. REVLIMID [Concomitant]
     Indication: PLASMA CELL MYELOMA
     Dosage: 25 MG, DAILY (1-2-1)
     Route: 048
     Dates: start: 20131218

REACTIONS (4)
  - Mononeuropathy multiplex [Recovering/Resolving]
  - Paraesthesia [Unknown]
  - Hypoaesthesia [Unknown]
  - Anaesthesia [Unknown]
